FAERS Safety Report 5782562-5 (Version None)
Quarter: 2008Q2

REPORT INFORMATION
  Report Type: 
  Country: None (occurrence: None)
  Receive Date: 20080623
  Receipt Date: 20080611
  Transmission Date: 20081010
  Serious: Yes (Death, Hospitalization)
  Sender: FDA-Public Use
  Company Number: FR-PFIZER INC-2008049763

PATIENT
  Age: 63 Year
  Sex: Male

DRUGS (3)
  1. DALACINE IV [Suspect]
     Route: 042
     Dates: start: 20080403, end: 20080409
  2. OFLOCET [Suspect]
     Indication: ENDOCARDITIS
     Route: 048
     Dates: start: 20080320, end: 20080409
  3. ORBENINE [Suspect]
     Route: 042
     Dates: start: 20080308, end: 20080403

REACTIONS (2)
  - RENAL FAILURE [None]
  - VASCULAR PURPURA [None]
